FAERS Safety Report 7685800-7 (Version None)
Quarter: 2011Q3

REPORT INFORMATION
  Report Type: 
  Country: None (occurrence: None)
  Receive Date: 20110815
  Receipt Date: 20110815
  Transmission Date: 20111222
  Serious: Yes (Other)
  Sender: FDA-Public Use
  Company Number: None

PATIENT
  Age: 49 Year
  Sex: Female
  Weight: 76.203 kg

DRUGS (1)
  1. LEVOTHYROXINE SODIUM [Suspect]
     Indication: HYPOTHYROIDISM
     Dosage: 75 MCG
     Route: 048
     Dates: start: 20090701, end: 20110808

REACTIONS (10)
  - HEART RATE INCREASED [None]
  - TREMOR [None]
  - HEARING IMPAIRED [None]
  - NECK PAIN [None]
  - NAUSEA [None]
  - CHEST PAIN [None]
  - HYPERHIDROSIS [None]
  - DYSPNOEA [None]
  - ANXIETY [None]
  - PULSE PRESSURE DECREASED [None]
